FAERS Safety Report 18536727 (Version 1)
Quarter: 2020Q4

REPORT INFORMATION
  Report Type: Spontaneous
  Country: GB (occurrence: GB)
  Receive Date: 20201123
  Receipt Date: 20201123
  Transmission Date: 20210114
  Serious: Yes (Other)
  Sender: FDA-Public Use
  Company Number: NVSC2020GB307368

PATIENT
  Sex: Male

DRUGS (2)
  1. QUETIAPINE. [Suspect]
     Active Substance: QUETIAPINE
     Indication: DEPRESSION
  2. QUETIAPINE. [Suspect]
     Active Substance: QUETIAPINE
     Indication: ANXIETY
     Dosage: UNK
     Route: 048

REACTIONS (10)
  - Cerebral disorder [Unknown]
  - Angina pectoris [Unknown]
  - Circumstance or information capable of leading to medication error [Unknown]
  - Pain [Unknown]
  - Pain in extremity [Unknown]
  - Testicular swelling [Unknown]
  - Brain hypoxia [Unknown]
  - Testicular pain [Unknown]
  - Abdominal pain [Unknown]
  - Feeling abnormal [Unknown]
